FAERS Safety Report 10990908 (Version 1)
Quarter: 2015Q2

REPORT INFORMATION
  Report Type: Spontaneous
  Country: US (occurrence: US)
  Receive Date: 20150406
  Receipt Date: 20150406
  Transmission Date: 20150821
  Serious: Yes (Other)
  Sender: FDA-Public Use
  Company Number: US-PFIZER INC-2015113056

PATIENT
  Age: 69 Year

DRUGS (2)
  1. SUTENT [Suspect]
     Active Substance: SUNITINIB MALATE
     Dosage: 50 MG, CYCLIC (12.5 MG X 4 CAPS) DAILY 28 DAYS ON 14 OFF
     Dates: start: 20141208
  2. CARVEDILOL. [Concomitant]
     Active Substance: CARVEDILOL

REACTIONS (13)
  - Platelet count decreased [Unknown]
  - Joint swelling [Unknown]
  - Diarrhoea [Unknown]
  - Haemoglobin decreased [Unknown]
  - Renal impairment [Unknown]
  - Decreased appetite [Unknown]
  - Dysgeusia [Unknown]
  - Fatigue [Unknown]
  - Blood glucose decreased [Unknown]
  - Dyspnoea exertional [Unknown]
  - Peripheral swelling [Unknown]
  - Generalised oedema [Unknown]
  - Blood pressure increased [Unknown]
